FAERS Safety Report 5378382-6 (Version None)
Quarter: 2007Q3

REPORT INFORMATION
  Report Type: 
  Country: None (occurrence: None)
  Receive Date: 20070702
  Receipt Date: 20070702
  Transmission Date: 20080115
  Serious: No
  Sender: FDA-Public Use
  Company Number: None

PATIENT
  Sex: Female
  Weight: 59 kg

DRUGS (3)
  1. CYTARABINE [Suspect]
     Dosage: 1162 MG
  2. DAUNORUBICIN HCL [Suspect]
     Dosage: 225 MG
  3. MYLOTARG [Suspect]
     Dosage: 10 MG

REACTIONS (8)
  - ANOREXIA [None]
  - BIOPSY BONE MARROW ABNORMAL [None]
  - BLAST CELLS PRESENT [None]
  - CHOLELITHIASIS [None]
  - COLITIS [None]
  - FEBRILE NEUTROPENIA [None]
  - MALNUTRITION [None]
  - ORAL INTAKE REDUCED [None]
